FAERS Safety Report 17286781 (Version 5)
Quarter: 2020Q1

REPORT INFORMATION
  Report Type: Spontaneous
  Country: JP (occurrence: JP)
  Receive Date: 20200119
  Receipt Date: 20200313
  Transmission Date: 20200409
  Serious: Yes (Hospitalization, Other)
  Sender: FDA-Public Use
  Company Number: NVSJ2020JP000707

PATIENT
  Age: 72 Year
  Sex: Female
  Weight: 60.9 kg

DRUGS (8)
  1. TYKERB [Suspect]
     Active Substance: LAPATINIB DITOSYLATE
     Indication: HER-2 POSITIVE BREAST CANCER
     Dosage: 1250 MG, QD
     Route: 048
     Dates: start: 20191211, end: 20200113
  2. XELODA [Suspect]
     Active Substance: CAPECITABINE
     Indication: HER-2 POSITIVE BREAST CANCER
     Dosage: 1500 MG, BID
     Route: 048
     Dates: start: 20191211
  3. MAGMITT [Concomitant]
     Active Substance: MAGNESIUM OXIDE
     Indication: CONSTIPATION
     Dosage: 330 MG, TID
     Route: 048
  4. MIYA-BM [Concomitant]
     Active Substance: CLOSTRIDIUM BUTYRICUM SPORES STRAIN M-55
     Indication: DIARRHOEA
     Dosage: 20 MG, TID
     Route: 048
  5. NAUZELIN [Concomitant]
     Active Substance: DOMPERIDONE
     Indication: NAUSEA
     Dosage: 10 MG, TID
     Route: 048
  6. XELODA [Suspect]
     Active Substance: CAPECITABINE
     Dosage: REDUCED
     Route: 048
     Dates: end: 20200113
  7. PARIET [Concomitant]
     Active Substance: RABEPRAZOLE SODIUM
     Indication: NAUSEA
     Dosage: 10 MG, QD
     Route: 048
     Dates: start: 20191211
  8. REBAMIPIDE [Concomitant]
     Active Substance: REBAMIPIDE
     Indication: ABDOMINAL PAIN UPPER
     Dosage: 100 MG, TID
     Route: 048

REACTIONS (6)
  - Rhabdomyolysis [Recovering/Resolving]
  - Hypokinesia [Unknown]
  - Ammonia increased [Unknown]
  - Blood creatine phosphokinase increased [Unknown]
  - Dysstasia [Unknown]
  - Depressed level of consciousness [Recovering/Resolving]

NARRATIVE: CASE EVENT DATE: 20200113
